FAERS Safety Report 6536745-7 (Version None)
Quarter: 2010Q1

REPORT INFORMATION
  Report Type: 
  Country: None (occurrence: None)
  Receive Date: 20100106
  Receipt Date: 20091222
  Transmission Date: 20100710
  Serious: Yes (Hospitalization)
  Sender: FDA-Public Use
  Company Number: 2009003893

PATIENT
  Age: 68 Year
  Sex: Female
  Weight: 56 kg

DRUGS (10)
  1. ERLOTINIB                   (TABLET) (ERLOTINIB) [Suspect]
     Indication: LUNG ADENOCARCINOMA
     Dosage: (150 MG, QD), ORAL
     Route: 048
     Dates: start: 20090918
  2. LENDORM [Concomitant]
  3. FURSULTIAMINE (FURSULTIAMINE) [Concomitant]
  4. BIOFERMIN (BIOFERMIN) [Concomitant]
  5. ADONA (CARBAZOCHROME SODIUM SULFONATE) [Concomitant]
  6. TRANSAMIN (TRANEXAMIC ACID) [Concomitant]
  7. ALFAROL (ALFACALCIDOL) [Concomitant]
  8. FERROMIA (FERROUS CITRATE) [Concomitant]
  9. SUCRALFATE [Concomitant]
  10. OLOPATADINE HYDROCHLORIDE [Concomitant]

REACTIONS (1)
  - ANAPHYLACTOID REACTION [None]
